FAERS Safety Report 7992911-5 (Version None)
Quarter: 2011Q4

REPORT INFORMATION
  Report Type: 
  Country: None (occurrence: None)
  Receive Date: 20111219
  Receipt Date: 20110531
  Transmission Date: 20120403
  Serious: No
  Sender: FDA-Public Use
  Company Number: US-ASTRAZENECA-2011SE33534

PATIENT
  Age: 67 Year
  Sex: Female

DRUGS (3)
  1. SYNTHROID [Concomitant]
  2. ZETIA [Concomitant]
  3. CRESTOR [Suspect]
     Indication: BLOOD CHOLESTEROL INCREASED
     Route: 048

REACTIONS (1)
  - ALOPECIA [None]
